FAERS Safety Report 9327372 (Version 3)
Quarter: 2015Q4

REPORT INFORMATION
  Report Type: Report from Study
  Country: US (occurrence: US)
  Receive Date: 20130604
  Receipt Date: 20151124
  Transmission Date: 20160305
  Serious: No
  Sender: FDA-Public Use
  Company Number: US-AMGEN-USASP2013037627

PATIENT
  Age: 70 Year
  Sex: Female

DRUGS (4)
  1. SULFUR. [Concomitant]
     Active Substance: SULFUR
     Dosage: UNK
  2. ENBREL [Suspect]
     Active Substance: ETANERCEPT
     Indication: PSORIASIS
     Dosage: 50 MG, 2 TIMES/WK
     Route: 065
     Dates: start: 20120927
  3. ENBREL [Suspect]
     Active Substance: ETANERCEPT
     Dosage: 50 MG, QWK
     Route: 065
  4. SULFACETAMIDE. [Concomitant]
     Active Substance: SULFACETAMIDE
     Dosage: UNK

REACTIONS (7)
  - Dandruff [Not Recovered/Not Resolved]
  - Stress [Unknown]
  - Erythema [Not Recovered/Not Resolved]
  - Psoriasis [Unknown]
  - Skin exfoliation [Not Recovered/Not Resolved]
  - Inappropriate schedule of drug administration [Unknown]
  - Anxiety disorder [Unknown]

NARRATIVE: CASE EVENT DATE: 201305
